FAERS Safety Report 19508442 (Version 3)
Quarter: 2021Q3

REPORT INFORMATION
  Report Type: Spontaneous
  Country: US (occurrence: US)
  Receive Date: 20210708
  Receipt Date: 20210830
  Transmission Date: 20211014
  Serious: No
  Sender: FDA-Public Use
  Company Number: NVSC2021US147617

PATIENT
  Sex: Female

DRUGS (2)
  1. PIQRAY [Suspect]
     Active Substance: ALPELISIB
     Indication: BREAST CANCER
     Dosage: 150 MG, QD
     Route: 048
     Dates: start: 202105
  2. PIQRAY [Suspect]
     Active Substance: ALPELISIB
     Dosage: 300 MG, QD
     Route: 048

REACTIONS (5)
  - Haemorrhoids [Unknown]
  - Abdominal discomfort [Recovering/Resolving]
  - Dyspnoea [Unknown]
  - Diarrhoea [Unknown]
  - Abnormal faeces [Unknown]
